FAERS Safety Report 18088682 (Version 2)
Quarter: 2020Q3

REPORT INFORMATION
  Report Type: Spontaneous
  Country: AU (occurrence: AU)
  Receive Date: 20200729
  Receipt Date: 20200731
  Transmission Date: 20201103
  Serious: Yes (Hospitalization)
  Sender: FDA-Public Use
  Company Number: AU-PFIZER INC-2020286579

PATIENT
  Sex: Female

DRUGS (2)
  1. DUAVIVE [Suspect]
     Active Substance: BAZEDOXIFENE ACETATE\ESTROGENS, CONJUGATED
     Dosage: UNK
  2. DUAVIVE [Suspect]
     Active Substance: BAZEDOXIFENE ACETATE\ESTROGENS, CONJUGATED
     Dosage: UNK
     Dates: end: 20200728

REACTIONS (8)
  - Anxiety [Unknown]
  - Hot flush [Unknown]
  - Blood pressure fluctuation [Unknown]
  - Muscle tightness [Unknown]
  - Stress [Unknown]
  - Hormone level abnormal [Unknown]
  - Erythema [Unknown]
  - Tension [Unknown]

NARRATIVE: CASE EVENT DATE: 2020
